FAERS Safety Report 9067702 (Version 1)
Quarter: 2013Q1

REPORT INFORMATION
  Report Type: Spontaneous
  Country: US (occurrence: US)
  Receive Date: 20130206
  Receipt Date: 20130206
  Transmission Date: 20140127
  Serious: Yes (Other)
  Sender: FDA-Public Use
  Company Number: US-JNJFOC-20130114326

PATIENT
  Age: 71 Year
  Sex: Female
  Weight: 108.86 kg

DRUGS (3)
  1. ZYRTEC IR [Suspect]
     Route: 048
  2. ZYRTEC IR [Suspect]
     Indication: MIDDLE EAR EFFUSION
     Route: 048
     Dates: start: 20120201
  3. NASONEX [Concomitant]
     Dosage: 2 SQUIRTS
     Route: 065

REACTIONS (4)
  - Ageusia [Unknown]
  - Anosmia [Unknown]
  - Off label use [Unknown]
  - Drug administered to patient of inappropriate age [Unknown]
